FAERS Safety Report 17819841 (Version 1)
Quarter: 2020Q2

REPORT INFORMATION
  Report Type: Spontaneous
  Country: NL (occurrence: NL)
  Receive Date: 20200524
  Receipt Date: 20200524
  Transmission Date: 20200714
  Serious: Yes (Hospitalization)
  Sender: FDA-Public Use
  Company Number: NL-NOVOPROD-728564

PATIENT
  Age: 40 Year
  Sex: Male

DRUGS (1)
  1. NOVORAPID [Suspect]
     Active Substance: INSULIN ASPART
     Indication: DIABETES MELLITUS
     Dosage: 50 IU, QD
     Route: 058

REACTIONS (2)
  - Hyperglycaemic unconsciousness [Unknown]
  - Product leakage [Unknown]

NARRATIVE: CASE EVENT DATE: 20200505
